FAERS Safety Report 8847250 (Version 1)
Quarter: 2012Q4

REPORT INFORMATION
  Report Type: 
  Country: US (occurrence: US)
  Receive Date: 20121018
  Receipt Date: 20121018
  Transmission Date: 20130627
  Serious: Yes (Hospitalization)
  Sender: FDA-Public Use
  Company Number: PHHY2012US089836

PATIENT
  Age: 58 Year
  Sex: Male

DRUGS (7)
  1. ALLOPURINOL [Suspect]
     Dosage: 40 DF, UNK
  2. FUROSEMIDE [Concomitant]
  3. CARVEDILOL [Concomitant]
  4. SIMVASTATIN [Concomitant]
  5. COLCHICINE [Concomitant]
  6. CLOPIDOGREL [Concomitant]
  7. ASPIRIN [Concomitant]

REACTIONS (9)
  - Renal failure acute [Recovered/Resolved]
  - Gastritis [Recovered/Resolved]
  - Haematochezia [Recovered/Resolved]
  - Vomiting [Recovered/Resolved]
  - Rectal haemorrhage [Recovered/Resolved]
  - Chest pain [Recovered/Resolved]
  - Musculoskeletal chest pain [Recovered/Resolved]
  - Drug level increased [Unknown]
  - Overdose [Unknown]
